FAERS Safety Report 20421530 (Version 1)
Quarter: 2022Q1

REPORT INFORMATION
  Report Type: Spontaneous
  Country: US (occurrence: US)
  Receive Date: 20220203
  Receipt Date: 20220203
  Transmission Date: 20220424
  Serious: Yes (Hospitalization, Other)
  Sender: FDA-Public Use
  Company Number: US-ELI_LILLY_AND_COMPANY-US202201010214

PATIENT
  Sex: Female

DRUGS (1)
  1. HUMALOG [Suspect]
     Active Substance: INSULIN LISPRO
     Indication: Product used for unknown indication
     Dosage: UNK, UNKNOWN
     Route: 065

REACTIONS (7)
  - Blood glucose abnormal [Recovering/Resolving]
  - Pre-eclampsia [Unknown]
  - Amniotic fluid volume increased [Unknown]
  - Weight decreased [Unknown]
  - Suppressed lactation [Unknown]
  - Blood pressure increased [Unknown]
  - Maternal exposure during pregnancy [Recovered/Resolved]
